FAERS Safety Report 5402467-9 (Version None)
Quarter: 2007Q3

REPORT INFORMATION
  Report Type: 
  Country: None (occurrence: None)
  Receive Date: 20070801
  Receipt Date: 20060620
  Transmission Date: 20080115
  Serious: No
  Sender: FDA-Public Use
  Company Number: A0609695A

PATIENT
  Age: 41 Year
  Sex: Female

DRUGS (4)
  1. IMITREX [Suspect]
     Indication: DRUG USE FOR UNKNOWN INDICATION
     Route: 048
     Dates: start: 20020101, end: 20020101
  2. IMITREX [Suspect]
     Indication: MIGRAINE
     Dosage: 6MG AS REQUIRED
     Route: 058
     Dates: start: 20020101, end: 20020101
  3. BIRTH CONTROL [Concomitant]
  4. PRILOSEC [Concomitant]

REACTIONS (1)
  - DRUG INEFFECTIVE [None]
